FAERS Safety Report 7240226-5 (Version None)
Quarter: 2011Q1

REPORT INFORMATION
  Report Type: 
  Country: None (occurrence: None)
  Receive Date: 20110113
  Receipt Date: 20101231
  Transmission Date: 20110831
  Serious: Yes (Hospitalization)
  Sender: FDA-Public Use
  Company Number: 023504

PATIENT
  Sex: Female
  Weight: 63.9572 kg

DRUGS (5)
  1. CIMZIA [Suspect]
     Indication: DRUG INEFFECTIVE
     Dosage: (400 MG 1X/2 WEEKS SUBCUTANEOUS), (200 MG 1X/2 WEEKK SUBCUTANEOUS)
     Route: 058
     Dates: start: 20090312
  2. CIMZIA [Suspect]
     Indication: CROHN'S DISEASE
     Dosage: (400 MG 1X/2 WEEKS SUBCUTANEOUS), (200 MG 1X/2 WEEKK SUBCUTANEOUS)
     Route: 058
     Dates: start: 20090312
  3. CIMZIA [Suspect]
     Indication: DRUG INEFFECTIVE
     Dosage: (400 MG 1X/2 WEEKS SUBCUTANEOUS), (200 MG 1X/2 WEEKK SUBCUTANEOUS)
     Route: 058
     Dates: start: 20100501
  4. CIMZIA [Suspect]
     Indication: CROHN'S DISEASE
     Dosage: (400 MG 1X/2 WEEKS SUBCUTANEOUS), (200 MG 1X/2 WEEKK SUBCUTANEOUS)
     Route: 058
     Dates: start: 20100501
  5. CORTIFOAM [Concomitant]

REACTIONS (11)
  - ORAL FUNGAL INFECTION [None]
  - CULTURE URINE POSITIVE [None]
  - LEFT ATRIAL DILATATION [None]
  - VULVOVAGINAL MYCOTIC INFECTION [None]
  - PNEUMONIA [None]
  - WHITE BLOOD CELLS URINE POSITIVE [None]
  - MYOCARDIAL INFARCTION [None]
  - BLOOD UREA INCREASED [None]
  - BLOOD POTASSIUM DECREASED [None]
  - DYSPHAGIA [None]
  - BLOOD GLUCOSE INCREASED [None]
